FAERS Safety Report 8494183-4 (Version None)
Quarter: 2012Q3

REPORT INFORMATION
  Report Type: 
  Country: None (occurrence: None)
  Receive Date: 20120709
  Receipt Date: 20120703
  Transmission Date: 20120928
  Serious: Yes (Other)
  Sender: FDA-Public Use
  Company Number: PHHY2012CA042868

PATIENT
  Sex: Male

DRUGS (2)
  1. CLOZARIL [Suspect]
     Indication: SCHIZOPHRENIA
     Dosage: 300 MG
     Route: 048
     Dates: start: 20110921, end: 20120621
  2. ANTIHYPERTENSIVE DRUGS [Concomitant]

REACTIONS (8)
  - PHAEOCHROMOCYTOMA [None]
  - HYPERTENSION [None]
  - FATIGUE [None]
  - TACHYCARDIA [None]
  - CARDIOMYOPATHY [None]
  - EXERCISE TOLERANCE DECREASED [None]
  - HYPERTROPHIC CARDIOMYOPATHY [None]
  - DYSPNOEA [None]
